FAERS Safety Report 19700909 (Version 8)
Quarter: 2024Q4

REPORT INFORMATION
  Report Type: Report from Study
  Country: US (occurrence: US)
  Receive Date: 20210813
  Receipt Date: 20241113
  Transmission Date: 20250115
  Serious: Yes (Other)
  Sender: TAKEDA
  Company Number: US-TAKEDA-2021TUS050542

PATIENT
  Age: 28 Year
  Sex: Male

DRUGS (4)
  1. ADVATE [Suspect]
     Active Substance: ANTIHEMOPHILIC FACTOR, HUMAN RECOMBINANT
     Indication: Product used for unknown indication
     Dosage: 1700 INTERNATIONAL UNIT
  2. ADVATE [Suspect]
     Active Substance: ANTIHEMOPHILIC FACTOR, HUMAN RECOMBINANT
     Dosage: 3400 INTERNATIONAL UNIT
  3. ADVATE [Suspect]
     Active Substance: ANTIHEMOPHILIC FACTOR, HUMAN RECOMBINANT
     Dosage: 3500 INTERNATIONAL UNIT
  4. ADVATE [Suspect]
     Active Substance: ANTIHEMOPHILIC FACTOR, HUMAN RECOMBINANT
     Dosage: 3500 INTERNATIONAL UNIT

REACTIONS (7)
  - Muscle haemorrhage [Recovered/Resolved]
  - Haematoma muscle [Recovered/Resolved]
  - Penile haemorrhage [Unknown]
  - Haemarthrosis [Unknown]
  - Animal bite [Unknown]
  - Road traffic accident [Unknown]
  - Penis injury [Unknown]

NARRATIVE: CASE EVENT DATE: 20210725
